FAERS Safety Report 5790248-6 (Version None)
Quarter: 2008Q2

REPORT INFORMATION
  Report Type: 
  Country: None (occurrence: None)
  Receive Date: 20080626
  Receipt Date: 20080512
  Transmission Date: 20081010
  Serious: No
  Sender: FDA-Public Use
  Company Number: A0706818A

PATIENT
  Weight: 75.9 kg

DRUGS (1)
  1. ALLI [Suspect]
     Route: 048
     Dates: start: 20080101

REACTIONS (6)
  - DEPRESSED MOOD [None]
  - GASTRIC DISORDER [None]
  - GASTROINTESTINAL DISORDER [None]
  - INCREASED APPETITE [None]
  - LAZINESS [None]
  - WEIGHT INCREASED [None]
